FAERS Safety Report 25587332 (Version 2)
Quarter: 2025Q3

REPORT INFORMATION
  Report Type: Spontaneous
  Country: TR (occurrence: TR)
  Receive Date: 20250721
  Receipt Date: 20250723
  Transmission Date: 20251020
  Serious: Yes (Death, Life-Threatening, Hospitalization, Other)
  Sender: PFIZER
  Company Number: TR-MLMSERVICE-20250707-PI567700-00270-1

PATIENT
  Age: 49 Year
  Sex: Male

DRUGS (3)
  1. METHYLPREDNISOLONE [Suspect]
     Active Substance: METHYLPREDNISOLONE
     Indication: Behcet^s syndrome
     Route: 042
  2. METHYLPREDNISOLONE [Suspect]
     Active Substance: METHYLPREDNISOLONE
     Dosage: 60 MG, 1X/DAY (CONTINUED)
     Route: 042
  3. CYCLOPHOSPHAMIDE [Suspect]
     Active Substance: CYCLOPHOSPHAMIDE
     Indication: Behcet^s syndrome
     Route: 042

REACTIONS (6)
  - Cerebral artery embolism [Fatal]
  - Infective aortitis [Fatal]
  - Candida infection [Fatal]
  - Haematoma muscle [Recovered/Resolved]
  - Off label use [Unknown]
  - Off label use [Unknown]
